FAERS Safety Report 5316047-7 (Version None)
Quarter: 2007Q2

REPORT INFORMATION
  Report Type: 
  Country: None (occurrence: None)
  Receive Date: 20070427
  Receipt Date: 20070418
  Transmission Date: 20071010
  Serious: Yes (Other)
  Sender: FDA-Public Use
  Company Number: 060014K07USA

PATIENT
  Age: 24 Year
  Sex: Female

DRUGS (2)
  1. SEROPHENE [Suspect]
     Indication: ANOVULATORY CYCLE
     Dosage: SEE IMAGE
     Route: 048
     Dates: start: 20040101, end: 20040101
  2. SEROPHENE [Suspect]
     Indication: ANOVULATORY CYCLE
     Dosage: SEE IMAGE
     Route: 048
     Dates: start: 20050101, end: 20060101

REACTIONS (2)
  - ABORTION SPONTANEOUS [None]
  - DRUG EXPOSURE DURING PREGNANCY [None]
